FAERS Safety Report 12425640 (Version 2)
Quarter: 2017Q3

REPORT INFORMATION
  Report Type: Spontaneous
  Country: DK (occurrence: DK)
  Receive Date: 20160601
  Receipt Date: 20170815
  Transmission Date: 20171127
  Serious: Yes (Hospitalization)
  Sender: FDA-Public Use
  Company Number: DK-SA-2016SA099533

PATIENT
  Sex: Female
  Weight: 4.1 kg

DRUGS (9)
  1. ANGUSTA DEVATS [Concomitant]
     Indication: LABOUR INDUCTION
     Dosage: UNK
     Dates: start: 20160509, end: 20160509
  2. MAGNYL [Concomitant]
     Active Substance: ASPIRIN
     Indication: ACUTE MYOCARDIAL INFARCTION
     Dosage: UNK
     Route: 064
     Dates: start: 20150825, end: 20160511
  3. VITAMIN D [Concomitant]
     Active Substance: CHOLECALCIFEROL
     Indication: PROPHYLAXIS
     Dosage: UNK
     Route: 064
     Dates: start: 20160307, end: 20160511
  4. PIVAMPICILLIN [Concomitant]
     Active Substance: PIVAMPICILLIN
     Dates: start: 20160111
  5. NOVORAPID [Suspect]
     Active Substance: INSULIN ASPART
     Indication: MATERNAL EXPOSURE TIMING UNSPECIFIED
     Dosage: 24 IU, QD
     Route: 064
     Dates: start: 20150825, end: 20160511
  6. METOPROLOL SUCCINATE. [Concomitant]
     Active Substance: METOPROLOL SUCCINATE
     Indication: ACUTE MYOCARDIAL INFARCTION
     Dosage: UNK
     Route: 064
     Dates: start: 20150825, end: 20160511
  7. GRAVITAMIN [Concomitant]
  8. LANTUS [Suspect]
     Active Substance: INSULIN GLARGINE
     Indication: MATERNAL EXPOSURE TIMING UNSPECIFIED
     Dosage: 36 IU, QD
     Route: 064
     Dates: start: 20150825, end: 20160511
  9. NITROGLYCERINE [Concomitant]
     Active Substance: NITROGLYCERIN
     Indication: ACUTE MYOCARDIAL INFARCTION
     Dosage: UNK
     Route: 064
     Dates: start: 20150825, end: 20160511

REACTIONS (3)
  - Foetal exposure during pregnancy [Unknown]
  - Shoulder dystocia [Recovered/Resolved]
  - Hypoglycaemia neonatal [Recovered/Resolved]

NARRATIVE: CASE EVENT DATE: 20150825
